FAERS Safety Report 7927291-4 (Version None)
Quarter: 2011Q4

REPORT INFORMATION
  Report Type: 
  Country: None (occurrence: None)
  Receive Date: 20111118
  Receipt Date: 20111108
  Transmission Date: 20120403
  Serious: Yes (Other)
  Sender: FDA-Public Use
  Company Number: PHHY2011US58540

PATIENT
  Sex: Female

DRUGS (1)
  1. EXJADE [Suspect]
     Dosage: 1500 MG, QD
     Route: 048
     Dates: start: 20110614

REACTIONS (9)
  - OSTEONECROSIS [None]
  - OEDEMA PERIPHERAL [None]
  - SOMNAMBULISM [None]
  - SWELLING FACE [None]
  - BACK PAIN [None]
  - ABDOMINAL PAIN [None]
  - DIARRHOEA [None]
  - BLOOD ALKALINE PHOSPHATASE INCREASED [None]
  - ARTHRALGIA [None]
